FAERS Safety Report 8577247-6 (Version None)
Quarter: 2012Q3

REPORT INFORMATION
  Report Type: 
  Country: None (occurrence: None)
  Receive Date: 20120807
  Receipt Date: 20120726
  Transmission Date: 20120928
  Serious: Yes (Hospitalization)
  Sender: FDA-Public Use
  Company Number: ES-CELGENEUS-144-50794-12072273

PATIENT
  Age: 79 Year
  Sex: Female

DRUGS (2)
  1. VIDAZA [Suspect]
     Route: 065
  2. EPOGEN [Concomitant]
     Route: 065

REACTIONS (2)
  - SEPTIC SHOCK [None]
  - LIVER DISORDER [None]
